FAERS Safety Report 24557257 (Version 2)
Quarter: 2024Q4

REPORT INFORMATION
  Report Type: Spontaneous
  Country: GB (occurrence: GB)
  Receive Date: 20241028
  Receipt Date: 20241218
  Transmission Date: 20250114
  Serious: Yes (Hospitalization, Other)
  Sender: GLAXOSMITHKLINE
  Company Number: GB-GSK-GB2024129331

PATIENT

DRUGS (2)
  1. MOMELOTINIB DIHYDROCHLORIDE [Suspect]
     Active Substance: MOMELOTINIB DIHYDROCHLORIDE
     Indication: Myelofibrosis
     Dosage: UNK
  2. RUXOLITINIB [Concomitant]
     Active Substance: RUXOLITINIB
     Indication: Product used for unknown indication
     Dosage: UNK

REACTIONS (6)
  - Change of bowel habit [Unknown]
  - Gastrointestinal haemorrhage [Not Recovered/Not Resolved]
  - Diverticulitis [Unknown]
  - Iron deficiency anaemia [Unknown]
  - Gastric polyps [Unknown]
  - Haemorrhage [Unknown]
